FAERS Safety Report 4616714-4 (Version None)
Quarter: 2005Q1

REPORT INFORMATION
  Report Type: 
  Country: None (occurrence: None)
  Receive Date: 20050321
  Receipt Date: 20050310
  Transmission Date: 20050727
  Serious: Yes (Hospitalization)
  Sender: FDA-Public Use
  Company Number: 2005AP01213

PATIENT
  Age: 78 Year
  Sex: Male

DRUGS (21)
  1. SEROQUEL [Suspect]
     Indication: MANIA
     Dosage: 25 MG HS PO
     Route: 048
     Dates: start: 20050126, end: 20050211
  2. EURODIN [Suspect]
     Indication: MANIA
     Dosage: 2 MG HS PO
     Route: 048
     Dates: start: 20050128, end: 20050211
  3. NXY-059 CODE NOT BROKEN [Suspect]
     Indication: ISCHAEMIC STROKE
     Dosage: 151 ML /HR IV
     Route: 042
     Dates: start: 20050112, end: 20050112
  4. NXY-059 CODE NOT BROKEN [Suspect]
     Indication: ISCHAEMIC STROKE
     Dosage: 32 ML /HR IV
     Route: 042
     Dates: start: 20050112, end: 20050115
  5. TRANSAMIN [Concomitant]
  6. HERBESSER [Concomitant]
  7. SULFATRIM [Concomitant]
  8. PIROXICAM [Concomitant]
  9. CEFALOZINE [Concomitant]
  10. ALLOPURINOL [Concomitant]
  11. NORVASC [Concomitant]
  12. COUGH SYRUP [Concomitant]
  13. BOKEY EMC [Concomitant]
  14. MGO [Concomitant]
  15. SENOKOT [Concomitant]
  16. ADALAT [Concomitant]
  17. CEFADROXIL [Concomitant]
  18. HALOPERIDOL [Concomitant]
  19. LONINE [Concomitant]
  20. COLCHICINE [Concomitant]
  21. NO MATCH [Concomitant]

REACTIONS (11)
  - ATRIAL FIBRILLATION [None]
  - COMA [None]
  - CONSTIPATION [None]
  - DEHYDRATION [None]
  - HAEMATURIA [None]
  - HYPOKALAEMIA [None]
  - LEUKOCYTOSIS [None]
  - LOSS OF CONSCIOUSNESS [None]
  - MANIA [None]
  - PRODUCTIVE COUGH [None]
  - URINARY TRACT INFECTION [None]
